FAERS Safety Report 11664425 (Version 1)
Quarter: 2015Q4

REPORT INFORMATION
  Report Type: Spontaneous
  Country: US (occurrence: US)
  Receive Date: 20151027
  Receipt Date: 20151027
  Transmission Date: 20160304
  Serious: No
  Sender: FDA-Public Use
  Company Number: US-ELI_LILLY_AND_COMPANY-US200911007310

PATIENT
  Sex: Female

DRUGS (2)
  1. FORTEO [Suspect]
     Active Substance: TERIPARATIDE
     Indication: OSTEOPOROSIS
     Dosage: UNK, UNKNOWN
     Dates: start: 200908, end: 2009
  2. FORTEO [Suspect]
     Active Substance: TERIPARATIDE
     Dosage: UNK, UNKNOWN
     Dates: start: 2009

REACTIONS (6)
  - Abdominal pain [Unknown]
  - Pain [Unknown]
  - Constipation [Recovered/Resolved]
  - Subcutaneous abscess [Unknown]
  - Intervertebral disc protrusion [Unknown]
  - Nausea [Unknown]

NARRATIVE: CASE EVENT DATE: 2009
